FAERS Safety Report 24293618 (Version 1)
Quarter: 2024Q3

REPORT INFORMATION
  Report Type: Spontaneous
  Country: US (occurrence: None)
  Receive Date: 20240906
  Receipt Date: 20240906
  Transmission Date: 20241017
  Serious: No
  Sender: DOMPE FARMACEUTICI
  Company Number: US-FARMAPROD-202308-202402-0462

PATIENT
  Age: 69 Year
  Sex: Female

DRUGS (12)
  1. OXERVATE [Suspect]
     Active Substance: CENEGERMIN-BKBJ
     Indication: Neurotrophic keratopathy
     Route: 047
     Dates: start: 20240209
  2. FLAXSEED [Concomitant]
     Active Substance: FLAX SEED
  3. VITAMINS [Concomitant]
     Active Substance: VITAMINS
  4. QUERCETIN [Concomitant]
     Active Substance: QUERCETIN
  5. PANTOPRAZOLE SODIUM [Concomitant]
     Active Substance: PANTOPRAZOLE SODIUM
  6. PROBIOTICS NOS [Concomitant]
     Active Substance: PROBIOTICS NOS
     Dosage: 10 BILLION OF CELLS
  7. GARLIC [Concomitant]
     Active Substance: GARLIC
  8. CITRACAL + D MAXIMUM [Concomitant]
  9. JOINT SUPPORT COMPLEX [Concomitant]
  10. VITAMIN D3 [Concomitant]
     Active Substance: CHOLECALCIFEROL
  11. COENZYME Q-10 [Concomitant]
     Dosage: 100MG-5
  12. XIIDRA [Concomitant]
     Active Substance: LIFITEGRAST
     Dosage: DROPERETTE

REACTIONS (1)
  - Wrong technique in product usage process [Unknown]

NARRATIVE: CASE EVENT DATE: 20240209
